FAERS Safety Report 15263673 (Version 1)
Quarter: 2018Q3

REPORT INFORMATION
  Report Type: Spontaneous
  Country: US (occurrence: US)
  Receive Date: 20180810
  Receipt Date: 20180810
  Transmission Date: 20181010
  Serious: No
  Sender: FDA-Public Use
  Company Number: US-TEVA-2018-US-919830

PATIENT
  Sex: Female
  Weight: 61.69 kg

DRUGS (1)
  1. RISEDRONIC ACID [Suspect]
     Active Substance: RISEDRONIC ACID
     Indication: BONE DISORDER
     Route: 065

REACTIONS (2)
  - Gastric polyps [Unknown]
  - Ulcer [Unknown]
